FAERS Safety Report 17934266 (Version 5)
Quarter: 2020Q3

REPORT INFORMATION
  Report Type: Spontaneous
  Country: US (occurrence: US)
  Receive Date: 20200624
  Receipt Date: 20200910
  Transmission Date: 20201103
  Serious: No
  Sender: FDA-Public Use
  Company Number: US-GLAXOSMITHKLINE-US2020AMR099918

PATIENT
  Sex: Female

DRUGS (3)
  1. ZEJULA [Suspect]
     Active Substance: NIRAPARIB
     Indication: OVARIAN CANCER
     Dosage: 200 MG, QD
     Route: 065
     Dates: start: 20200511
  2. ZEJULA [Suspect]
     Active Substance: NIRAPARIB
     Indication: MALIGNANT PERITONEAL NEOPLASM
     Dosage: 100 MG, QD
     Dates: start: 20200614
  3. ZEJULA [Suspect]
     Active Substance: NIRAPARIB
     Dosage: 200 MG, QD
     Dates: start: 202008

REACTIONS (24)
  - Hot flush [Unknown]
  - Nausea [Unknown]
  - Arthralgia [Not Recovered/Not Resolved]
  - Hepatic enzyme increased [Unknown]
  - Underdose [Unknown]
  - Head discomfort [Not Recovered/Not Resolved]
  - Product dose omission issue [Unknown]
  - Myalgia [Unknown]
  - Pain in extremity [Unknown]
  - Heart rate increased [Recovering/Resolving]
  - Fatigue [Not Recovered/Not Resolved]
  - Muscle spasms [Unknown]
  - Dizziness [Unknown]
  - Blood sodium decreased [Unknown]
  - Neoplasm progression [Unknown]
  - Insomnia [Unknown]
  - Hypertension [Unknown]
  - Blood pressure increased [Not Recovered/Not Resolved]
  - Constipation [Recovering/Resolving]
  - Carbohydrate antigen 125 increased [Unknown]
  - Feeling abnormal [Unknown]
  - Headache [Not Recovered/Not Resolved]
  - Vision blurred [Unknown]
  - Dyspnoea [Unknown]
